FAERS Safety Report 4551996-9 (Version None)
Quarter: 2004Q4

REPORT INFORMATION
  Report Type: 
  Country: None (occurrence: None)
  Receive Date: 20041217
  Receipt Date: 20040817
  Transmission Date: 20050328
  Serious: No
  Sender: FDA-Public Use
  Company Number: 2004-BP-06937BP

PATIENT
  Age: 76 Year
  Sex: Female

DRUGS (8)
  1. SPIRIVA [Suspect]
     Indication: CHRONIC OBSTRUCTIVE AIRWAYS DISEASE
     Dosage: 18 MCG (18 MCG), IH
     Route: 055
     Dates: start: 20040729
  2. UNIPHYL [Concomitant]
  3. THYROID TAB [Concomitant]
  4. ALDACTOZIDE [Concomitant]
  5. ZOCOR [Concomitant]
  6. VENTOLIN [Concomitant]
  7. ADVAIR (SERETIDE MITE) [Concomitant]
  8. MEPROLAMATE [Concomitant]

REACTIONS (2)
  - BLADDER DISCOMFORT [None]
  - MICTURITION URGENCY [None]
